FAERS Safety Report 11200384 (Version 1)
Quarter: 2015Q2

REPORT INFORMATION
  Report Type: Spontaneous
  Country: DE (occurrence: DE)
  Receive Date: 20150618
  Receipt Date: 20150618
  Transmission Date: 20150821
  Serious: Yes (Other)
  Sender: FDA-Public Use
  Company Number: PHHY2015DE069332

PATIENT
  Age: 67 Year
  Weight: 82 kg

DRUGS (1)
  1. SANDOSTATIN [Suspect]
     Active Substance: OCTREOTIDE ACETATE
     Indication: NEOPLASM MALIGNANT
     Route: 065

REACTIONS (3)
  - Metastases to bone [Unknown]
  - Metastases to liver [Unknown]
  - Malignant neoplasm progression [Unknown]
